FAERS Safety Report 19811675 (Version 1)
Quarter: 2021Q3

REPORT INFORMATION
  Report Type: Spontaneous
  Country: US (occurrence: US)
  Receive Date: 20210909
  Receipt Date: 20210909
  Transmission Date: 20211014
  Serious: Yes (Other)
  Sender: FDA-Public Use
  Company Number: US-ACCORD-214210

PATIENT
  Age: 51 Year
  Sex: Female
  Weight: 139.71 kg

DRUGS (12)
  1. KORLYM [Concomitant]
     Active Substance: MIFEPRISTONE
     Indication: PITUITARY-DEPENDENT CUSHING^S SYNDROME
     Dosage: TITRATED TO 600 MG, 900MG DAILY
     Route: 048
     Dates: start: 20200515
  2. HUMALOG [Concomitant]
     Active Substance: INSULIN LISPRO
  3. LINZESS [Concomitant]
     Active Substance: LINACLOTIDE
  4. TRULICITY [Concomitant]
     Active Substance: DULAGLUTIDE
  5. CYCLOBENZAPRINE. [Concomitant]
     Active Substance: CYCLOBENZAPRINE
  6. LISINOPRIL. [Suspect]
     Active Substance: LISINOPRIL
     Indication: PRODUCT USED FOR UNKNOWN INDICATION
  7. XARELTO [Concomitant]
     Active Substance: RIVAROXABAN
  8. SPIRONOLACTONE. [Concomitant]
     Active Substance: SPIRONOLACTONE
  9. NORTRIPTYLINE [Concomitant]
     Active Substance: NORTRIPTYLINE
  10. COREG CR [Concomitant]
     Active Substance: CARVEDILOL PHOSPHATE
  11. CARBAMAZEPINE. [Concomitant]
     Active Substance: CARBAMAZEPINE
  12. IRON [Concomitant]
     Active Substance: IRON

REACTIONS (1)
  - Hypotension [Recovered/Resolved]
